FAERS Safety Report 5257278-4 (Version None)
Quarter: 2007Q1

REPORT INFORMATION
  Report Type: 
  Country: None (occurrence: None)
  Receive Date: 20070307
  Receipt Date: 20070228
  Transmission Date: 20070707
  Serious: Yes (Hospitalization)
  Sender: FDA-Public Use
  Company Number: 2006UW24240

PATIENT
  Age: 664 Month
  Sex: Female
  Weight: 127.3 kg

DRUGS (6)
  1. SEROQUEL [Suspect]
     Indication: SCHIZOPHRENIA
     Route: 048
     Dates: start: 20030101
  2. RISPERDAL [Suspect]
     Dates: start: 20030101, end: 20050101
  3. ABILIFY [Concomitant]
     Dates: start: 20030101, end: 20040101
  4. CLOZARIL [Concomitant]
     Dates: end: 20040101
  5. HALDOL [Concomitant]
     Dosage: 5 MG-100 MG
     Dates: start: 20000101, end: 20040101
  6. ZYPREXA [Concomitant]
     Dosage: 15 MG-30 MG
     Dates: start: 20030101, end: 20040101

REACTIONS (3)
  - DIABETES MELLITUS [None]
  - DIABETES MELLITUS INADEQUATE CONTROL [None]
  - GASTRIC OPERATION [None]
